FAERS Safety Report 22152130 (Version 1)
Quarter: 2023Q1

REPORT INFORMATION
  Report Type: Spontaneous
  Country: US (occurrence: US)
  Receive Date: 20230329
  Receipt Date: 20230329
  Transmission Date: 20230418
  Serious: No
  Sender: FDA-Public Use
  Company Number: US-BION-010965

PATIENT

DRUGS (1)
  1. ALEVE [Suspect]
     Active Substance: NAPROXEN SODIUM
     Indication: Osteoarthritis
     Dosage: 2 LIQUID GELS TWICE DAILY

REACTIONS (2)
  - Drug effective for unapproved indication [Not Recovered/Not Resolved]
  - Incorrect dose administered [Not Recovered/Not Resolved]
